FAERS Safety Report 10018601 (Version 1)
Quarter: 2014Q1

REPORT INFORMATION
  Report Type: Spontaneous
  Country: KP (occurrence: None)
  Receive Date: 20140312
  Receipt Date: 20140312
  Transmission Date: 20141002
  Serious: Yes (Other)
  Sender: FDA-Public Use
  Company Number: FK201400768

PATIENT
  Age: 62 Year
  Sex: Female

DRUGS (3)
  1. METHOTREXATE (MANUFACTURER UNKNOWN) (METHOTREXATE) (METHOTREXATE) [Suspect]
     Indication: PROPHYLAXIS AGAINST GRAFT VERSUS HOST DISEASE
     Dosage: NOT OTHERWISE SPECIFIED
     Route: 042
  2. CYCLOSPORINE A [Suspect]
     Indication: PROPHYLAXIS AGAINST GRAFT VERSUS HOST DISEASE
     Dosage: 1 D NOT OTHERWISE SPECIFIED
     Route: 042
  3. MYCOPHENOLATE MOFETIL [Concomitant]

REACTIONS (4)
  - Encephalitis viral [None]
  - Lacunar infarction [None]
  - Pneumonia aspiration [None]
  - BK virus infection [None]
